FAERS Safety Report 7303505-9 (Version None)
Quarter: 2011Q1

REPORT INFORMATION
  Report Type: 
  Country: None (occurrence: None)
  Receive Date: 20110221
  Receipt Date: 20110209
  Transmission Date: 20110831
  Serious: Yes (Hospitalization, Other)
  Sender: FDA-Public Use
  Company Number: PHHY2009JP28203

PATIENT
  Age: 78 Year
  Sex: Male
  Weight: 53 kg

DRUGS (2)
  1. IMATINIB [Suspect]
     Dosage: 300 MG, QD
     Route: 048
     Dates: start: 20080101
  2. IMATINIB [Suspect]
     Indication: GASTROINTESTINAL STROMAL TUMOUR
     Dosage: 400 MG, QD
     Route: 048
     Dates: start: 20070301

REACTIONS (4)
  - NEOPLASM MALIGNANT [None]
  - WHITE BLOOD CELL COUNT DECREASED [None]
  - GASTROINTESTINAL STROMAL TUMOUR [None]
  - ANAEMIA [None]
